FAERS Safety Report 25240516 (Version 1)
Quarter: 2025Q2

REPORT INFORMATION
  Report Type: Spontaneous
  Country: GB (occurrence: None)
  Receive Date: 20250425
  Receipt Date: 20250425
  Transmission Date: 20250717
  Serious: Yes (Death, Other)
  Sender: INCYTE
  Company Number: GB-INCYTE CORPORATION-2025IN004386

PATIENT
  Age: 59 Year

DRUGS (1)
  1. PEMAZYRE [Suspect]
     Active Substance: PEMIGATINIB
     Route: 065

REACTIONS (2)
  - Death [Fatal]
  - Prostate cancer metastatic [Unknown]
